FAERS Safety Report 9499560 (Version 1)
Quarter: 2013Q3

REPORT INFORMATION
  Report Type: Spontaneous
  Country: US (occurrence: None)
  Receive Date: 20130903
  Receipt Date: 20130903
  Transmission Date: 20140515
  Serious: Yes (Hospitalization)
  Sender: FDA-Public Use
  Company Number: None

PATIENT
  Age: 65 Year
  Sex: Male
  Weight: 64.6 kg

DRUGS (2)
  1. NAPROXEN [Suspect]
     Indication: PAIN
     Dates: start: 20130611, end: 20130614
  2. ASPIRIN [Suspect]
     Dosage: 81 MG  EVERY DAY PO
     Route: 048
     Dates: start: 20090728

REACTIONS (2)
  - Gastric ulcer [None]
  - Gastric haemorrhage [None]
